FAERS Safety Report 16266182 (Version 4)
Quarter: 2020Q4

REPORT INFORMATION
  Report Type: Spontaneous
  Country: US (occurrence: US)
  Receive Date: 20190502
  Receipt Date: 20201006
  Transmission Date: 20210113
  Serious: Yes (Other)
  Sender: FDA-Public Use
  Company Number: US-GILEAD-2019-0405370

PATIENT
  Age: 55 Year
  Sex: Male
  Weight: 90.7 kg

DRUGS (71)
  1. VITAMIN B6 [Concomitant]
     Active Substance: PYRIDOXINE HYDROCHLORIDE
  2. TRICOR [ADENOSINE] [Concomitant]
     Active Substance: ADENOSINE
  3. ISONIAZID. [Concomitant]
     Active Substance: ISONIAZID
  4. SERTRALINE [Concomitant]
     Active Substance: SERTRALINE HYDROCHLORIDE
  5. SULFAMETHOXAZOLE AND TRIMETHOPRIM [Concomitant]
     Active Substance: SULFAMETHOXAZOLE\TRIMETHOPRIM
  6. PREPLUS B12 [Concomitant]
  7. MUCINEX [Concomitant]
     Active Substance: GUAIFENESIN
  8. KALETRA [Concomitant]
     Active Substance: LOPINAVIR\RITONAVIR
  9. TRUVADA [Suspect]
     Active Substance: EMTRICITABINE\TENOFOVIR DISOPROXIL FUMARATE
     Indication: HIV INFECTION
     Dosage: 1 DOSAGE FORM, QD
     Route: 048
     Dates: start: 200602, end: 200802
  10. KETOCONAZOLE. [Concomitant]
     Active Substance: KETOCONAZOLE
  11. HYDROCODONE/ACETAMINOPHEN [Concomitant]
     Active Substance: ACETAMINOPHEN\HYDROCODONE
  12. HYDROCHLOROTHIAZIDE. [Concomitant]
     Active Substance: HYDROCHLOROTHIAZIDE
  13. SUSTIVA [Concomitant]
     Active Substance: EFAVIRENZ
  14. ATRIPLA [Suspect]
     Active Substance: EFAVIRENZ\EMTRICITABINE\TENOFOVIR DISOPROXIL FUMARATE
     Dosage: UNK
     Route: 048
     Dates: start: 200607, end: 201012
  15. FENOFIBRATE. [Concomitant]
     Active Substance: FENOFIBRATE
  16. FLUTICASONE PROPIONATE. [Concomitant]
     Active Substance: FLUTICASONE PROPIONATE
  17. HUMALOG JUNIOR KWIKPEN [Concomitant]
     Active Substance: INSULIN LISPRO
  18. ESCITALOPRAM OXALATE. [Concomitant]
     Active Substance: ESCITALOPRAM OXALATE
  19. HIBICLENS [Concomitant]
     Active Substance: CHLORHEXIDINE GLUCONATE
  20. MELATONIN [Concomitant]
     Active Substance: MELATONIN
  21. AMOXICILLIN. [Concomitant]
     Active Substance: AMOXICILLIN
  22. ATRIPLA [Suspect]
     Active Substance: EFAVIRENZ\EMTRICITABINE\TENOFOVIR DISOPROXIL FUMARATE
     Indication: HIV INFECTION
     Dosage: UNK
     Route: 048
     Dates: start: 200803, end: 201212
  23. VIREAD [Suspect]
     Active Substance: TENOFOVIR DISOPROXIL FUMARATE
     Indication: PRODUCT USED FOR UNKNOWN INDICATION
     Dosage: UNK
     Route: 048
     Dates: start: 2002, end: 2003
  24. CALCIUM 600 + D [Concomitant]
     Active Substance: CALCIUM\VITAMIN D
  25. GLIPIZIDE. [Concomitant]
     Active Substance: GLIPIZIDE
  26. ISENTRESS [Concomitant]
     Active Substance: RALTEGRAVIR POTASSIUM
  27. LISINOPRIL. [Concomitant]
     Active Substance: LISINOPRIL
  28. NYSTATIN. [Concomitant]
     Active Substance: NYSTATIN
  29. ONDANSETRON [Concomitant]
     Active Substance: ONDANSETRON
  30. ONGLYZA [Concomitant]
     Active Substance: SAXAGLIPTIN HYDROCHLORIDE
  31. DICYCLOMINE HCL [Concomitant]
     Active Substance: DICYCLOMINE HYDROCHLORIDE
  32. LEVOFLOXACIN. [Concomitant]
     Active Substance: LEVOFLOXACIN
  33. CARVEDILOL. [Concomitant]
     Active Substance: CARVEDILOL
  34. IBUPROFEN. [Concomitant]
     Active Substance: IBUPROFEN
  35. EPIVIR [Concomitant]
     Active Substance: LAMIVUDINE
  36. INSULIN [Concomitant]
     Active Substance: INSULIN NOS
  37. HYDROXYZINE [Concomitant]
     Active Substance: HYDROXYZINE HYDROCHLORIDE
  38. TRUVADA [Suspect]
     Active Substance: EMTRICITABINE\TENOFOVIR DISOPROXIL FUMARATE
     Dosage: 1 DOSAGE FORM, QD
     Route: 048
     Dates: start: 201012, end: 201512
  39. ASPIRIN 81 [Concomitant]
     Active Substance: ASPIRIN
  40. CLINDAMYCIN. [Concomitant]
     Active Substance: CLINDAMYCIN
  41. METOCLOPRAMIDE. [Concomitant]
     Active Substance: METOCLOPRAMIDE
  42. FISH OIL [Concomitant]
     Active Substance: FISH OIL
  43. PRENATAL PLUS [Concomitant]
     Active Substance: .ALPHA.-TOCOPHEROL ACETATE, DL-\.BETA.-CAROTENE\ASCORBIC ACID\CALCIUM CARBONATE\CHOLECALCIFEROL\CUPRIC OXIDE\CYANOCOBALAMIN\FERROUS FUMARATE\FOLIC ACID\NIACINAMIDE\PYRIDOXINE HYDROCHLORIDE\RIBOFLAVIN\THIAMINE MONONITRATE\VITAMIN A ACETATE\ZINC OXIDE
  44. VENTOLIN HFA [Concomitant]
     Active Substance: ALBUTEROL SULFATE
  45. ATORVASTATIN [Concomitant]
     Active Substance: ATORVASTATIN
  46. AZITHROMYCIN ANHYDROUS. [Concomitant]
     Active Substance: AZITHROMYCIN ANHYDROUS
  47. BENZONATATE. [Concomitant]
     Active Substance: BENZONATATE
  48. VIAGRA [Concomitant]
     Active Substance: SILDENAFIL CITRATE
  49. TYLENOL [Concomitant]
     Active Substance: ACETAMINOPHEN
  50. INVIRASE [Concomitant]
     Active Substance: SAQUINAVIR MESYLATE
  51. LANTUS [Concomitant]
     Active Substance: INSULIN GLARGINE
  52. GLYBURIDE. [Concomitant]
     Active Substance: GLYBURIDE
  53. PANTOPRAZOLE SODIUM. [Concomitant]
     Active Substance: PANTOPRAZOLE SODIUM
  54. CARAFATE [Concomitant]
     Active Substance: SUCRALFATE
  55. LEVSIN [Concomitant]
     Active Substance: HYOSCYAMINE SULFATE
  56. CLARITIN ALLERGY DECONGESTANT [Concomitant]
  57. MELOXICAM. [Concomitant]
     Active Substance: MELOXICAM
  58. PROMETHAZINE [Concomitant]
     Active Substance: PROMETHAZINE HYDROCHLORIDE
  59. LEXAPRO [Concomitant]
     Active Substance: ESCITALOPRAM OXALATE
  60. AMLODIPINE BESYLATE. [Concomitant]
     Active Substance: AMLODIPINE BESYLATE
  61. TRUVADA [Suspect]
     Active Substance: EMTRICITABINE\TENOFOVIR DISOPROXIL FUMARATE
     Dosage: 1 DOSAGE FORM, QD
     Route: 048
     Dates: start: 20101027, end: 20161027
  62. GENVOYA [Concomitant]
     Active Substance: COBICISTAT\ELVITEGRAVIR\EMTRICITABINE\TENOFOVIR ALAFENAMIDE FUMARATE
     Dosage: UNK
     Route: 048
     Dates: start: 20161027, end: 20181129
  63. BIKTARVY [Concomitant]
     Active Substance: BICTEGRAVIR SODIUM\EMTRICITABINE\TENOFOVIR ALAFENAMIDE FUMARATE
     Dosage: UNK
     Dates: start: 20181129
  64. NEXIUM I.V. [Concomitant]
     Active Substance: ESOMEPRAZOLE SODIUM
  65. ACYCLOVIR ABBOTT VIAL [Concomitant]
  66. FLUCONAZOLE. [Concomitant]
     Active Substance: FLUCONAZOLE
  67. COREG [Concomitant]
     Active Substance: CARVEDILOL
  68. ALEVE [Concomitant]
     Active Substance: NAPROXEN SODIUM
  69. BACTRIM [Concomitant]
     Active Substance: SULFAMETHOXAZOLE\TRIMETHOPRIM
  70. CRIXIVAN [Concomitant]
     Active Substance: INDINAVIR SULFATE
  71. NORVIR [Concomitant]
     Active Substance: RITONAVIR

REACTIONS (11)
  - Bone density decreased [Unknown]
  - Loss of personal independence in daily activities [Unknown]
  - Renal failure [Not Recovered/Not Resolved]
  - Anxiety [Unknown]
  - Osteonecrosis [Not Recovered/Not Resolved]
  - Bone loss [Unknown]
  - Pain in extremity [Unknown]
  - Anhedonia [Unknown]
  - Emotional distress [Unknown]
  - Economic problem [Unknown]
  - Lipohypertrophy [Not Recovered/Not Resolved]

NARRATIVE: CASE EVENT DATE: 2006
